FAERS Safety Report 9313965 (Version 1)
Quarter: 2013Q2

REPORT INFORMATION
  Report Type: Spontaneous
  Country: US (occurrence: US)
  Receive Date: 20130529
  Receipt Date: 20130529
  Transmission Date: 20140414
  Serious: Yes (Other)
  Sender: FDA-Public Use
  Company Number: US-RANBAXY-2013US-69457

PATIENT
  Age: 82 Year
  Sex: Male

DRUGS (1)
  1. GABAPENTIN [Suspect]
     Indication: EPILEPSY
     Dosage: UNK
     Route: 065

REACTIONS (1)
  - Lymphomatoid papulosis [Recovering/Resolving]
